FAERS Safety Report 20846095 (Version 2)
Quarter: 2022Q2

REPORT INFORMATION
  Report Type: Spontaneous
  Country: US (occurrence: US)
  Receive Date: 20220518
  Receipt Date: 20220520
  Transmission Date: 20220720
  Serious: No
  Sender: FDA-Public Use
  Company Number: US-PFIZER INC-202200106596

PATIENT
  Age: 74 Year
  Sex: Female
  Weight: 67.59 kg

DRUGS (1)
  1. DESVENLAFAXINE SUCCINATE [Suspect]
     Active Substance: DESVENLAFAXINE SUCCINATE
     Dosage: 100 MG, 1X/DAY (100MG, TABLET, BY MOUTH, ONCE DAILY)
     Route: 048

REACTIONS (1)
  - Drug ineffective [Unknown]
